FAERS Safety Report 6683538-6 (Version None)
Quarter: 2010Q2

REPORT INFORMATION
  Report Type: 
  Country: None (occurrence: None)
  Receive Date: 20100413
  Receipt Date: 20100409
  Transmission Date: 20101027
  Serious: Yes (Disabling, Other)
  Sender: FDA-Public Use
  Company Number: 006616

PATIENT
  Age: 71 Year
  Sex: Female

DRUGS (1)
  1. MACUGEN [Suspect]
     Dosage: INTRAOCULAR
     Route: 031
     Dates: start: 20100223

REACTIONS (1)
  - OPTIC ISCHAEMIC NEUROPATHY [None]
